FAERS Safety Report 9623286 (Version 2)
Quarter: 2013Q4

REPORT INFORMATION
  Report Type: Spontaneous
  Country: US (occurrence: None)
  Receive Date: 20131010
  Receipt Date: 20131107
  Transmission Date: 20140711
  Serious: Yes (Life-Threatening, Hospitalization, Other)
  Sender: FDA-Public Use
  Company Number: INT_00318_2013

PATIENT
  Age: 40 Year
  Sex: Female
  Weight: 58.4 kg

DRUGS (8)
  1. CISPLATIN [Suspect]
     Indication: LEUKAEMIA
     Route: 042
     Dates: start: 20130913, end: 20130913
  2. CISPLATIN [Suspect]
     Indication: ADULT T-CELL LYMPHOMA/LEUKAEMIA
     Route: 042
     Dates: start: 20130913, end: 20130913
  3. DEXAMETHASONE [Suspect]
     Indication: ADULT T-CELL LYMPHOMA/LEUKAEMIA
     Dosage: DAILY
     Route: 042
     Dates: start: 20130913, end: 20130916
  4. CYTARABINE [Suspect]
     Indication: ADULT T-CELL LYMPHOMA/LEUKAEMIA
     Route: 042
     Dates: start: 20130914, end: 20130915
  5. ZOFRAN [Concomitant]
  6. ACYCLOVIR [Concomitant]
  7. ACETMINOPHEN [Concomitant]
  8. CIPRO [Concomitant]

REACTIONS (2)
  - Thrombocytopenia [None]
  - Hypercalcaemia [None]
